FAERS Safety Report 9034248 (Version 1)
Quarter: 2013Q1

REPORT INFORMATION
  Report Type: Spontaneous
  Country: US (occurrence: None)
  Receive Date: 20130116
  Receipt Date: 20130116
  Transmission Date: 20140127
  Serious: No
  Sender: FDA-Public Use
  Company Number: None

PATIENT
  Age: 85 Year
  Sex: Female
  Weight: 58.51 kg

DRUGS (1)
  1. CIPRO [Suspect]
     Route: 048

REACTIONS (4)
  - Nausea [None]
  - Headache [None]
  - Dizziness [None]
  - Anxiety [None]
